FAERS Safety Report 5910495-X (Version None)
Quarter: 2008Q4

REPORT INFORMATION
  Report Type: 
  Country: None (occurrence: None)
  Receive Date: 20081007
  Receipt Date: 20080130
  Transmission Date: 20090506
  Serious: No
  Sender: FDA-Public Use
  Company Number: US-ASTRAZENECA-2008UW02220

PATIENT
  Age: 44 Year
  Sex: Female

DRUGS (3)
  1. ARIMIDEX [Suspect]
     Indication: BREAST CANCER
     Route: 048
  2. LEXAPRO [Suspect]
     Indication: ANXIETY
     Dates: start: 20070101
  3. LEXAPRO [Suspect]
     Indication: INSOMNIA
     Dates: start: 20070101

REACTIONS (5)
  - ANXIETY [None]
  - ARTHRALGIA [None]
  - BONE PAIN [None]
  - INSOMNIA [None]
  - JOINT SWELLING [None]
